FAERS Safety Report 8934484 (Version 1)
Quarter: 2012Q4

REPORT INFORMATION
  Report Type: 
  Country: US (occurrence: US)
  Receive Date: 20121129
  Receipt Date: 20121129
  Transmission Date: 20130627
  Serious: No
  Sender: FDA-Public Use
  Company Number: US-GLAXOSMITHKLINE-A0949756A

PATIENT
  Sex: Female

DRUGS (1)
  1. FLOVENT [Suspect]
     Indication: PRODUCT USED FOR UNKNOWN INDICATION
     Route: 055

REACTIONS (6)
  - Dysgeusia [Unknown]
  - Feeling jittery [Unknown]
  - Heart rate increased [Unknown]
  - Dyspnoea [Unknown]
  - Tremor [Unknown]
  - Product quality issue [Unknown]
